FAERS Safety Report 7039055-7 (Version None)
Quarter: 2010Q4

REPORT INFORMATION
  Report Type: 
  Country: None (occurrence: None)
  Receive Date: 20101012
  Receipt Date: 20101004
  Transmission Date: 20110411
  Serious: No
  Sender: FDA-Public Use
  Company Number: US-JNJFOC-20101001139

PATIENT
  Sex: Female
  Weight: 72.58 kg

DRUGS (9)
  1. DURAGESIC-100 [Suspect]
     Indication: RADICULAR PAIN
     Route: 062
  2. LYRICA [Concomitant]
     Indication: NEURALGIA
     Route: 048
  3. ZANAFLEX [Concomitant]
     Route: 048
  4. CYMBALTA [Concomitant]
     Indication: DEPRESSION
     Route: 048
  5. LIDODERM [Concomitant]
     Indication: PAIN
     Route: 062
  6. LORATADINE [Concomitant]
     Indication: HYPERSENSITIVITY
     Route: 048
  7. BENTYL [Concomitant]
     Route: 048
  8. DARVOCET [Concomitant]
     Indication: PAIN
     Dosage: AS NEEDED
     Route: 048
  9. RESTASIS [Concomitant]
     Indication: DRY EYE
     Dosage: 1 DROP
     Route: 031

REACTIONS (5)
  - EATING DISORDER [None]
  - HYPERHIDROSIS [None]
  - NAUSEA [None]
  - VOMITING [None]
  - WRONG TECHNIQUE IN DRUG USAGE PROCESS [None]
